FAERS Safety Report 19221379 (Version 1)
Quarter: 2021Q2

REPORT INFORMATION
  Report Type: Spontaneous
  Country: ES (occurrence: ES)
  Receive Date: 20210505
  Receipt Date: 20210505
  Transmission Date: 20210717
  Serious: Yes (Hospitalization)
  Sender: FDA-Public Use
  Company Number: NVSC2021ES096033

PATIENT
  Age: 57 Year
  Sex: Male
  Weight: 81 kg

DRUGS (10)
  1. OXALIPLATIN. [Suspect]
     Active Substance: OXALIPLATIN
     Dosage: 85 MG
     Route: 042
     Dates: start: 20210329
  2. FLUOROURACIL. [Suspect]
     Active Substance: FLUOROURACIL
     Indication: OESOPHAGEAL CARCINOMA
     Dosage: 2600 MG
     Route: 042
     Dates: start: 20201014
  3. OXALIPLATIN. [Suspect]
     Active Substance: OXALIPLATIN
     Indication: OESOPHAGEAL CARCINOMA
     Dosage: 85 MG
     Route: 042
     Dates: start: 20201014
  4. DOCETAXEL. [Suspect]
     Active Substance: DOCETAXEL
     Indication: OESOPHAGEAL CARCINOMA
     Dosage: 71.3 G
     Route: 042
     Dates: start: 20201014
  5. DOCETAXEL. [Suspect]
     Active Substance: DOCETAXEL
     Dosage: 71.3 G
     Route: 042
     Dates: start: 20210329
  6. AVELUMAB [Concomitant]
     Active Substance: AVELUMAB
     Indication: OESOPHAGEAL CARCINOMA
     Dosage: 710 G
     Route: 042
     Dates: start: 20201014
  7. CALCIUM FOLINATE [Suspect]
     Active Substance: LEUCOVORIN CALCIUM
     Indication: OESOPHAGEAL CARCINOMA
     Dosage: 199 MG
     Route: 042
     Dates: start: 20201014
  8. CALCIUM FOLINATE [Suspect]
     Active Substance: LEUCOVORIN CALCIUM
     Dosage: 199 MG
     Route: 042
     Dates: start: 20210329
  9. FLUOROURACIL. [Suspect]
     Active Substance: FLUOROURACIL
     Dosage: 2600 MG
     Route: 042
     Dates: start: 20210329
  10. AVELUMAB [Concomitant]
     Active Substance: AVELUMAB
     Dosage: 710 G
     Route: 042
     Dates: start: 20210329

REACTIONS (1)
  - Infection [Recovered/Resolved]

NARRATIVE: CASE EVENT DATE: 20210330
